FAERS Safety Report 20335102 (Version 2)
Quarter: 2022Q1

REPORT INFORMATION
  Report Type: Spontaneous
  Country: JP (occurrence: JP)
  Receive Date: 20220114
  Receipt Date: 20220210
  Transmission Date: 20220423
  Serious: Yes (Death, Other)
  Sender: FDA-Public Use
  Company Number: JP-TAKEDA-2022TJP005438

PATIENT
  Age: 40 Year
  Sex: Female

DRUGS (1)
  1. ALUNBRIG [Suspect]
     Active Substance: BRIGATINIB
     Indication: Non-small cell lung cancer stage IIIA
     Dosage: 180 MILLIGRAM, QD
     Route: 048
     Dates: start: 20210716, end: 20210820

REACTIONS (1)
  - Non-small cell lung cancer stage IIIA [Fatal]

NARRATIVE: CASE EVENT DATE: 20211112
